FAERS Safety Report 6035214-0 (Version None)
Quarter: 2009Q1

REPORT INFORMATION
  Report Type: 
  Country: None (occurrence: None)
  Receive Date: 20090112
  Receipt Date: 20090105
  Transmission Date: 20090719
  Serious: Yes (Other)
  Sender: FDA-Public Use
  Company Number: US-GENENTECH-273136

PATIENT
  Age: 69 Year
  Sex: Female

DRUGS (5)
  1. RITUXAN [Suspect]
     Indication: IDIOPATHIC THROMBOCYTOPENIC PURPURA
     Dosage: 375/M2, UNK
     Dates: start: 20030424
  2. PREDNISONE [Concomitant]
     Indication: ARTHRALGIA
     Dosage: 60 MG, UNK
  3. PREDNISONE [Concomitant]
     Dosage: 10-20 MG, UNK
  4. PREDNISONE [Concomitant]
     Dosage: 5-15 MG, UNK
  5. IMURAN [Concomitant]
     Indication: DRUG USE FOR UNKNOWN INDICATION
     Dosage: 200 UNK, BID

REACTIONS (1)
  - PROGRESSIVE MULTIFOCAL LEUKOENCEPHALOPATHY [None]
